FAERS Safety Report 6928474-2 (Version None)
Quarter: 2010Q3

REPORT INFORMATION
  Report Type: 
  Country: None (occurrence: None)
  Receive Date: 20100806
  Receipt Date: 20100806
  Transmission Date: 20110219
  Serious: No
  Sender: FDA-Public Use
  Company Number: 2009-00289

PATIENT
  Age: 81 Year
  Sex: Male
  Weight: 72.5755 kg

DRUGS (3)
  1. ZICAM COLD REMEDY GEL SWABS [Suspect]
     Dosage: QID X 7 DAYS
     Dates: start: 20090401
  2. ZOCOR [Concomitant]
  3. DILANTIN [Concomitant]

REACTIONS (1)
  - ANOSMIA [None]
